FAERS Safety Report 8386347-5 (Version None)
Quarter: 2012Q2

REPORT INFORMATION
  Report Type: 
  Country: None (occurrence: None)
  Receive Date: 20120523
  Receipt Date: 20120511
  Transmission Date: 20120825
  Serious: Yes (Hospitalization)
  Sender: FDA-Public Use
  Company Number: AUR-APL-2009-00075

PATIENT
  Age: 73 Year
  Sex: Female
  Weight: 33.5 kg

DRUGS (3)
  1. METFORMIN HCL [Suspect]
     Indication: TYPE 2 DIABETES MELLITUS
     Dosage: 500 MG (250 MG,2 IN 1 D),ORAL
     Route: 048
  2. NATEGLINNIDE (NATEGLINIDE) [Concomitant]
  3. PIOGLITAZONE [Concomitant]

REACTIONS (8)
  - HEPATOTOXICITY [None]
  - NAUSEA [None]
  - FATIGUE [None]
  - ABDOMINAL PAIN [None]
  - VOMITING [None]
  - DECREASED APPETITE [None]
  - HEPATITIS ACUTE [None]
  - BILE DUCT STENOSIS [None]
